FAERS Safety Report 9744490 (Version 2)
Quarter: 2014Q1

REPORT INFORMATION
  Report Type: Spontaneous
  Country: US (occurrence: US)
  Receive Date: 20131210
  Receipt Date: 20140117
  Transmission Date: 20141002
  Serious: Yes (Hospitalization)
  Sender: FDA-Public Use
  Company Number: US-B.I. PHARMACEUTICALS,INC./RIDGEFIELD-2013-BI-41278BP

PATIENT
  Sex: Male
  Weight: 113.4 kg

DRUGS (9)
  1. PRADAXA [Suspect]
     Indication: ATRIAL FIBRILLATION
     Dates: start: 201108, end: 20110920
  2. METOPROLOL [Concomitant]
     Dates: start: 2006, end: 2012
  3. COMBIVENT [Concomitant]
  4. LASIX [Concomitant]
     Dates: start: 2006, end: 2012
  5. ALTACE [Concomitant]
     Dates: start: 2006, end: 2012
  6. LUTEIN [Concomitant]
     Dates: start: 2006, end: 2012
  7. ASPIRIN [Concomitant]
     Dates: start: 2006, end: 2012
  8. CENTRUM [Concomitant]
     Dates: start: 2006, end: 2012
  9. PLAVIX [Concomitant]

REACTIONS (4)
  - Gastrointestinal haemorrhage [Unknown]
  - Haemorrhagic anaemia [Unknown]
  - Multiple system atrophy [Unknown]
  - Delusion [Unknown]
